FAERS Safety Report 7859265-6 (Version None)
Quarter: 2011Q4

REPORT INFORMATION
  Report Type: 
  Country: None (occurrence: None)
  Receive Date: 20111027
  Receipt Date: 20111027
  Transmission Date: 20120403
  Serious: Yes (Hospitalization)
  Sender: FDA-Public Use
  Company Number: None

PATIENT
  Age: 57 Year
  Sex: Male
  Weight: 81.193 kg

DRUGS (2)
  1. DAPTOMYCIN [Suspect]
     Indication: BURSITIS INFECTIVE STAPHYLOCOCCAL
     Dosage: 480 MG
     Route: 042
  2. DAPTOMYCIN [Suspect]
     Indication: STAPHYLOCOCCAL OSTEOMYELITIS
     Dosage: 480 MG
     Route: 042

REACTIONS (1)
  - LUNG INFILTRATION [None]
